FAERS Safety Report 20344086 (Version 1)
Quarter: 2022Q1

REPORT INFORMATION
  Report Type: Spontaneous
  Country: US (occurrence: US)
  Receive Date: 20220118
  Receipt Date: 20220118
  Transmission Date: 20220423
  Serious: Yes (Other)
  Sender: FDA-Public Use
  Company Number: US-AMGEN-USASP2022007783

PATIENT
  Age: 15 Year
  Sex: Female

DRUGS (2)
  1. OTEZLA [Suspect]
     Active Substance: APREMILAST
     Indication: Juvenile psoriatic arthritis
     Dosage: 30 MILLIGRAM, BID
     Route: 048
     Dates: start: 20211222
  2. HUMIRA [Concomitant]
     Active Substance: ADALIMUMAB
     Dosage: 40 UNK

REACTIONS (2)
  - Juvenile psoriatic arthritis [Unknown]
  - Off label use [Unknown]

NARRATIVE: CASE EVENT DATE: 20211222
